FAERS Safety Report 5637712-8 (Version None)
Quarter: 2008Q1

REPORT INFORMATION
  Report Type: 
  Country: None (occurrence: None)
  Receive Date: 20080225
  Receipt Date: 20080219
  Transmission Date: 20080703
  Serious: No
  Sender: FDA-Public Use
  Company Number: US-BAXTER-2008BH001497

PATIENT
  Age: 52 Year
  Sex: Female

DRUGS (1)
  1. HEPARIN SODIUM [Suspect]
     Indication: THROMBOSIS PROPHYLAXIS
     Route: 042

REACTIONS (7)
  - CARDIAC FAILURE CONGESTIVE [None]
  - CYANOSIS [None]
  - HYPOTENSION [None]
  - HYPOVENTILATION [None]
  - PUPIL FIXED [None]
  - TACHYCARDIA [None]
  - UNRESPONSIVE TO STIMULI [None]
